FAERS Safety Report 4630745-X (Version None)
Quarter: 2005Q2

REPORT INFORMATION
  Report Type: 
  Country: None (occurrence: None)
  Receive Date: 20050408
  Receipt Date: 20050308
  Transmission Date: 20051028
  Serious: Yes (Other)
  Sender: FDA-Public Use
  Company Number: JP-ROCHE-398465

PATIENT
  Age: 75 Year
  Sex: Female

DRUGS (3)
  1. TAMIFLU [Suspect]
     Route: 048
     Dates: start: 20050304, end: 20050304
  2. TAMIFLU [Suspect]
     Route: 048
     Dates: start: 20050305, end: 20050307
  3. TAMIFLU [Suspect]
     Route: 048
     Dates: start: 20050308, end: 20050308

REACTIONS (2)
  - LEUKOPENIA [None]
  - THROMBOCYTOPENIA [None]
